FAERS Safety Report 24079873 (Version 3)
Quarter: 2024Q4

REPORT INFORMATION
  Report Type: Spontaneous
  Country: US (occurrence: US)
  Receive Date: 20240711
  Receipt Date: 20241202
  Transmission Date: 20250115
  Serious: No
  Sender: PFIZER
  Company Number: US-PFIZER INC-PV202400074466

PATIENT
  Age: 54 Year
  Sex: Female

DRUGS (5)
  1. TUKYSA [Suspect]
     Active Substance: TUCATINIB
     Indication: Breast cancer female
     Dosage: 2 TABLETS, 2X/DAY
  2. TUKYSA [Suspect]
     Active Substance: TUCATINIB
     Dosage: 1 TABLET, 1X/DAY
  3. TUKYSA [Suspect]
     Active Substance: TUCATINIB
     Dosage: 150 MG
  4. TUKYSA [Suspect]
     Active Substance: TUCATINIB
     Dosage: 150 MG TAKE TWO TABLETS BY MOUTH TWICE DAILY
     Route: 048
  5. CAPECITABINE [Suspect]
     Active Substance: CAPECITABINE
     Dosage: UNK

REACTIONS (6)
  - Gastrointestinal disorder [Unknown]
  - Liver disorder [Unknown]
  - Malaise [Unknown]
  - Dyspnoea [Unknown]
  - Off label use [Unknown]
  - Product use issue [Unknown]
